FAERS Safety Report 8972852 (Version 1)
Quarter: 2012Q4

REPORT INFORMATION
  Report Type: 
  Country: CA (occurrence: CA)
  Receive Date: 20121218
  Receipt Date: 20121218
  Transmission Date: 20130627
  Serious: Yes (Hospitalization)
  Sender: FDA-Public Use
  Company Number: CA-ROCHE-1169562

PATIENT
  Age: 70 Year
  Sex: Male
  Weight: 57.6 kg

DRUGS (18)
  1. ZELBORAF [Suspect]
     Indication: METASTATIC MALIGNANT MELANOMA
     Route: 048
     Dates: start: 20120326, end: 20120813
  2. AVAPRO [Concomitant]
     Indication: HYPERTENSION
     Route: 048
     Dates: end: 20120719
  3. GLUCOBAY [Concomitant]
     Indication: DIABETES MELLITUS
     Route: 048
     Dates: end: 20120716
  4. LIPITOR [Concomitant]
     Indication: HYPERCHOLESTEROLAEMIA
     Route: 048
  5. PANTOPRAZOLE [Concomitant]
     Indication: GASTRIC ULCER
     Route: 048
     Dates: start: 20120326
  6. VITAMIN D [Concomitant]
     Indication: PROPHYLAXIS
     Route: 048
  7. ESTER C PLUS [Concomitant]
     Indication: PROPHYLAXIS
     Route: 048
  8. PROFERRIN [Concomitant]
     Indication: ANAEMIA
     Route: 048
     Dates: start: 20120206
  9. HYDROCORTISONE CREAM [Concomitant]
     Indication: RASH
     Route: 061
     Dates: start: 20120423
  10. KAYEXALATE [Concomitant]
     Indication: HYPERKALAEMIA
     Route: 048
     Dates: start: 20120522, end: 20120522
  11. MAGNESIUM OXIDE [Concomitant]
     Indication: BLOOD MAGNESIUM DECREASED
     Route: 048
     Dates: start: 20120528, end: 20120528
  12. GOLD BOND (UNK INGREDIENTS) [Concomitant]
     Indication: RASH
     Route: 061
     Dates: end: 20120423
  13. BENADRYL [Concomitant]
     Indication: RASH
     Route: 048
     Dates: end: 20120701
  14. METOCLOPRAMIDE [Concomitant]
     Indication: NAUSEA
     Route: 048
     Dates: start: 20120720
  15. SENOKOT [Concomitant]
     Indication: CONSTIPATION
     Route: 048
  16. DIMENHYDRINATE [Concomitant]
     Indication: NAUSEA
     Route: 042
     Dates: start: 20120720, end: 20120720
  17. METFORMIN [Concomitant]
     Indication: DIABETES MELLITUS
     Route: 048
     Dates: end: 20120716
  18. ACTOS [Concomitant]
     Indication: DIABETES MELLITUS
     Route: 048
     Dates: end: 20120716

REACTIONS (13)
  - Renal failure acute [Recovered/Resolved]
  - Urinary tract infection [Recovered/Resolved with Sequelae]
  - Rash [Not Recovered/Not Resolved]
  - Hyperkalaemia [Not Recovered/Not Resolved]
  - Alopecia [Not Recovered/Not Resolved]
  - Vomiting [Recovered/Resolved]
  - Nausea [Not Recovered/Not Resolved]
  - Asthenia [Not Recovered/Not Resolved]
  - Decreased appetite [Not Recovered/Not Resolved]
  - Weight decreased [Not Recovered/Not Resolved]
  - Constipation [Recovered/Resolved]
  - Sunburn [Not Recovered/Not Resolved]
  - Blood creatinine increased [Recovered/Resolved]
